FAERS Safety Report 17389523 (Version 1)
Quarter: 2020Q1

REPORT INFORMATION
  Report Type: Spontaneous
  Country: AU (occurrence: AU)
  Receive Date: 20200207
  Receipt Date: 20200207
  Transmission Date: 20200409
  Serious: Yes (Hospitalization, Other)
  Sender: FDA-Public Use
  Company Number: AU-EMD SERONO-9143346

PATIENT
  Age: 36 Year
  Sex: Female

DRUGS (8)
  1. QUETIAPINE. [Concomitant]
     Active Substance: QUETIAPINE
     Indication: PRODUCT USED FOR UNKNOWN INDICATION
  2. MAVENCLAD [Suspect]
     Active Substance: CLADRIBINE
     Dosage: YEAR ONE WEEK FIVE THERAPY
     Dates: start: 20191121, end: 20191124
  3. SYMBICORT [Concomitant]
     Active Substance: BUDESONIDE\FORMOTEROL FUMARATE DIHYDRATE
     Indication: PRODUCT USED FOR UNKNOWN INDICATION
     Dosage: 2 PUFFS TWICE A DAY
  4. MAVENCLAD [Suspect]
     Active Substance: CLADRIBINE
     Indication: MULTIPLE SCLEROSIS
     Dosage: YEAR ONE WEEK ONE THERAPY
     Dates: start: 20191008, end: 20191012
  5. VENTOLIN [Concomitant]
     Active Substance: ALBUTEROL SULFATE
     Indication: ASTHMA
  6. METOPROLOL. [Concomitant]
     Active Substance: METOPROLOL
  7. DIAZEPAM. [Concomitant]
     Active Substance: DIAZEPAM
     Indication: MOOD SWINGS
  8. METOPROLOL. [Concomitant]
     Active Substance: METOPROLOL
     Indication: PRODUCT USED FOR UNKNOWN INDICATION

REACTIONS (15)
  - Abdominal pain lower [Unknown]
  - Tremor [Unknown]
  - Lymphocyte count decreased [Recovering/Resolving]
  - Rhinitis [Unknown]
  - Muscular weakness [Unknown]
  - Infection [Unknown]
  - Fatigue [Unknown]
  - Micturition urgency [Unknown]
  - Pain in extremity [Unknown]
  - Neutrophil count decreased [Recovering/Resolving]
  - Leukopenia [Unknown]
  - Nausea [Unknown]
  - Pyrexia [Recovered/Resolved]
  - Pollakiuria [Unknown]
  - Pain in jaw [Unknown]

NARRATIVE: CASE EVENT DATE: 201910
